FAERS Safety Report 17407665 (Version 1)
Quarter: 2020Q1

REPORT INFORMATION
  Report Type: Spontaneous
  Country: FI (occurrence: FI)
  Receive Date: 20200212
  Receipt Date: 20200212
  Transmission Date: 20200409
  Serious: Yes (Death, Life-Threatening, Other)
  Sender: FDA-Public Use
  Company Number: FI-SCIEGEN PHARMACEUTICALS INC-2020SCILIT00035

PATIENT

DRUGS (3)
  1. BUPRENORPHINE. [Suspect]
     Active Substance: BUPRENORPHINE
  2. FLUALPRAZOLAM [Suspect]
     Active Substance: FLUALPRAZOLAM
  3. PREGABALIN CAPSULES [Suspect]
     Active Substance: PREGABALIN

REACTIONS (3)
  - Poisoning [Fatal]
  - Accidental exposure to product [Fatal]
  - Toxicity to various agents [Fatal]
